FAERS Safety Report 6139150-0 (Version None)
Quarter: 2009Q2

REPORT INFORMATION
  Report Type: 
  Country: None (occurrence: None)
  Receive Date: 20090401
  Receipt Date: 20090317
  Transmission Date: 20091009
  Serious: Yes (Hospitalization, Other)
  Sender: FDA-Public Use
  Company Number: US-PFIZER INC-2008053929

PATIENT
  Sex: Female
  Weight: 63.5 kg

DRUGS (8)
  1. CHANTIX [Suspect]
     Indication: SMOKING CESSATION THERAPY
     Dosage: UNK
     Route: 048
     Dates: start: 20070414
  2. CARBIDOPA AND LEVODOPA [Concomitant]
     Indication: PARKINSON'S DISEASE
  3. KLONOPIN [Concomitant]
  4. LUNESTA [Concomitant]
  5. CLARITIN [Concomitant]
  6. THYROID TAB [Concomitant]
     Indication: HYPOTHYROIDISM
  7. RITALIN [Concomitant]
     Indication: CHRONIC FATIGUE SYNDROME
     Dosage: UNK
  8. CYMBALTA [Concomitant]

REACTIONS (4)
  - HEADACHE [None]
  - INCORRECT DOSE ADMINISTERED [None]
  - MENTAL DISORDER [None]
  - PARKINSON'S DISEASE [None]
